FAERS Safety Report 4426476-1 (Version None)
Quarter: 2004Q3

REPORT INFORMATION
  Report Type: 
  Country: None (occurrence: None)
  Receive Date: 20040816
  Receipt Date: 20040803
  Transmission Date: 20050211
  Serious: Yes (Hospitalization)
  Sender: FDA-Public Use
  Company Number: JP-JNJFOC-20040801041

PATIENT
  Sex: Male
  Weight: 60 kg

DRUGS (3)
  1. REMICADE [Suspect]
     Indication: CROHN'S DISEASE
     Dosage: RECEIVED INFLIXIMAB 8 TIMES.
     Route: 042
  2. IMRAN [Concomitant]
     Route: 049
  3. PENTASA [Concomitant]
     Route: 049

REACTIONS (3)
  - DISSEMINATED INTRAVASCULAR COAGULATION [None]
  - ENTEROBACTER SEPSIS [None]
  - INTERSTITIAL LUNG DISEASE [None]
